FAERS Safety Report 4283575-5 (Version None)
Quarter: 2004Q1

REPORT INFORMATION
  Report Type: 
  Country: None (occurrence: None)
  Receive Date: 20040202
  Receipt Date: 20010621
  Transmission Date: 20041129
  Serious: Yes (Hospitalization, Other)
  Sender: FDA-Public Use
  Company Number: NL-GLAXOSMITHKLINE-B0251074B

PATIENT

DRUGS (2)
  1. SEROXAT [Suspect]
     Dosage: 20MG PER DAY
     Route: 065
  2. VITAMIN K TAB [Concomitant]
     Dosage: 1MG PER DAY
     Route: 048

REACTIONS (18)
  - CONVULSION [None]
  - CONVULSION NEONATAL [None]
  - DILATATION VENTRICULAR [None]
  - EPILEPSY [None]
  - EYE MOVEMENT DISORDER [None]
  - FONTANELLE BULGING [None]
  - HYPOTONIA [None]
  - HYPOTONIA NEONATAL [None]
  - INTRAVENTRICULAR HAEMORRHAGE NEONATAL [None]
  - JOINT HYPEREXTENSION [None]
  - LETHARGY [None]
  - MATERNAL DRUGS AFFECTING FOETUS [None]
  - NEONATAL APNOEIC ATTACK [None]
  - NERVOUS SYSTEM DISORDER [None]
  - RESPIRATORY DISORDER [None]
  - RESPIRATORY DISORDER NEONATAL [None]
  - VISUAL EVOKED POTENTIALS ABNORMAL [None]
  - VOMITING [None]
